FAERS Safety Report 21087227 (Version 1)
Quarter: 2022Q3

REPORT INFORMATION
  Report Type: Spontaneous
  Country: US (occurrence: None)
  Receive Date: 20220714
  Receipt Date: 20220714
  Transmission Date: 20221027
  Serious: Yes (Other)
  Sender: FDA-Public Use
  Company Number: None

PATIENT
  Age: 82 Year
  Sex: Female
  Weight: 58 kg

DRUGS (2)
  1. REMDESIVIR [Suspect]
     Active Substance: REMDESIVIR
     Indication: COVID-19
     Dosage: FREQUENCY : DAILY;?
     Route: 042
     Dates: start: 20220711, end: 20220713
  2. Coreg 3.125mg BID [Concomitant]
     Dates: end: 20220713

REACTIONS (4)
  - Unresponsive to stimuli [None]
  - Hypertension [None]
  - Cardiac arrest [None]
  - Therapy cessation [None]

NARRATIVE: CASE EVENT DATE: 20220713
